FAERS Safety Report 7511160-8 (Version None)
Quarter: 2011Q2

REPORT INFORMATION
  Report Type: 
  Country: None (occurrence: None)
  Receive Date: 20110531
  Receipt Date: 20081105
  Transmission Date: 20111010
  Serious: Yes (Death, Other)
  Sender: FDA-Public Use
  Company Number: US-BAYER-2011-010204

PATIENT
  Age: 58 Year
  Sex: Male
  Weight: 70 kg

DRUGS (13)
  1. DIGOXIN [Concomitant]
     Dosage: 0.125 MG, UNK
     Route: 048
  2. LISINOPRIL [Concomitant]
     Dosage: 5 MG, LONG TERM
     Route: 048
  3. BUPROPION HYDROCHLORIDE [Concomitant]
     Dosage: 150 MG, UNK
     Route: 048
  4. AMLODIPINE [Concomitant]
     Dosage: 5 MG, UNK
     Route: 048
  5. PRILOSEC [Concomitant]
     Dosage: 20 MG, UNK
     Route: 048
  6. TORSEMIDE [Concomitant]
     Dosage: 20 MG, UNK
     Route: 048
  7. TRASYLOL [Suspect]
     Dosage: UNK
     Route: 042
     Dates: start: 20000101
  8. METOPROLOL TARTRATE [Concomitant]
     Dosage: 50 MG, UNK
     Route: 048
  9. TRASYLOL [Suspect]
     Indication: CORONARY ARTERY BYPASS
     Dosage: UNK
     Route: 042
     Dates: start: 20040819
  10. GLIMEPIRIDE [Concomitant]
     Dosage: 5 MG,LONG TERM
     Route: 048
  11. ACETYLSALICYLIC ACID SRT [Concomitant]
     Dosage: 325 MG, UNK
     Route: 048
  12. CITALOPRAM HYDROBROMIDE [Concomitant]
     Dosage: 40 MG, UNK
     Route: 048
  13. SIMVASTATIN [Concomitant]
     Dosage: 20 MG, LONG TERM
     Route: 048

REACTIONS (11)
  - UNEVALUABLE EVENT [None]
  - EMOTIONAL DISTRESS [None]
  - INJURY [None]
  - ANXIETY [None]
  - CEREBROVASCULAR ACCIDENT [None]
  - RENAL FAILURE [None]
  - STRESS [None]
  - MYOCARDIAL INFARCTION [None]
  - FEAR [None]
  - PAIN [None]
  - DEATH [None]
